FAERS Safety Report 10765861 (Version 1)
Quarter: 2015Q1

REPORT INFORMATION
  Report Type: Spontaneous
  Country: US (occurrence: None)
  Receive Date: 20150204
  Receipt Date: 20150204
  Transmission Date: 20150721
  Serious: Yes (Hospitalization)
  Sender: FDA-Public Use
  Company Number: None

PATIENT
  Age: 75 Year
  Sex: Female
  Weight: 110.6 kg

DRUGS (19)
  1. LEXAPRO [Concomitant]
     Active Substance: ESCITALOPRAM OXALATE
  2. LOPRESSOR [Concomitant]
     Active Substance: METOPROLOL TARTRATE
  3. KDUR [Concomitant]
  4. DOXYCYCLINE. [Suspect]
     Active Substance: DOXYCYCLINE
     Indication: WOUND
     Route: 048
  5. COLACE [Concomitant]
     Active Substance: DOCUSATE SODIUM
  6. MIRAPEX [Concomitant]
     Active Substance: PRAMIPEXOLE DIHYDROCHLORIDE
  7. ALTACE [Concomitant]
     Active Substance: RAMIPRIL
  8. ZYMAXID [Concomitant]
     Active Substance: GATIFLOXACIN
  9. DEMADEX [Concomitant]
     Active Substance: TORSEMIDE
  10. ZAROXOLYN [Concomitant]
     Active Substance: METOLAZONE
  11. PRILOSEC [Concomitant]
     Active Substance: OMEPRAZOLE MAGNESIUM
  12. OXYCONTIN [Concomitant]
     Active Substance: OXYCODONE HYDROCHLORIDE
  13. DEMADEX [Concomitant]
     Active Substance: TORSEMIDE
  14. COUMADIN [Suspect]
     Active Substance: WARFARIN SODIUM
     Indication: ATRIAL FIBRILLATION
     Dosage: 1 MG SUN/THURS PO
     Route: 048
  15. ULORIC [Concomitant]
     Active Substance: FEBUXOSTAT
  16. TOPAMAX [Concomitant]
     Active Substance: TOPIRAMATE
  17. LIDODERM [Concomitant]
     Active Substance: LIDOCAINE
  18. CYMBALTA [Concomitant]
     Active Substance: DULOXETINE HYDROCHLORIDE
  19. KENALOG [Concomitant]
     Active Substance: TRIAMCINOLONE ACETONIDE

REACTIONS (5)
  - Chronic gastritis [None]
  - International normalised ratio increased [None]
  - Oesophageal ulcer [None]
  - Coagulopathy [None]
  - Upper gastrointestinal haemorrhage [None]

NARRATIVE: CASE EVENT DATE: 20141111
